FAERS Safety Report 10881961 (Version 3)
Quarter: 2021Q1

REPORT INFORMATION
  Report Type: Spontaneous
  Country: NZ (occurrence: NZ)
  Receive Date: 20150303
  Receipt Date: 20210309
  Transmission Date: 20210419
  Serious: Yes (Congenital Anomaly, Other)
  Sender: FDA-Public Use
  Company Number: NZ-ABBVIE-15P-118-1354304-00

PATIENT
  Sex: Male
  Weight: 2.02 kg

DRUGS (1)
  1. VALPROATE SODIUM. [Suspect]
     Active Substance: VALPROATE SODIUM
     Indication: MATERNAL EXPOSURE TIMING UNSPECIFIED
     Route: 064

REACTIONS (6)
  - Premature separation of placenta [Unknown]
  - Foetal growth restriction [Unknown]
  - Autism spectrum disorder [Unknown]
  - Developmental delay [Unknown]
  - Foetal anticonvulsant syndrome [Unknown]
  - Foetal exposure during pregnancy [Unknown]
